FAERS Safety Report 17680620 (Version 1)
Quarter: 2020Q2

REPORT INFORMATION
  Report Type: Spontaneous
  Country: US (occurrence: US)
  Receive Date: 20200417
  Receipt Date: 20200417
  Transmission Date: 20200714
  Serious: Yes (Death, Other)
  Sender: FDA-Public Use
  Company Number: US-ASTRAZENECA-2019SE10841

PATIENT

DRUGS (1)
  1. NEXIUM [Suspect]
     Active Substance: ESOMEPRAZOLE MAGNESIUM
     Dosage: FOR VARIOUS DATES AND YEARS BEGINNING IN ATLEAST 2007
     Route: 048

REACTIONS (4)
  - End stage renal disease [Unknown]
  - Renal failure [Unknown]
  - Death [Fatal]
  - Rebound acid hypersecretion [Unknown]
